FAERS Safety Report 4585961-2 (Version None)
Quarter: 2005Q1

REPORT INFORMATION
  Report Type: 
  Country: None (occurrence: None)
  Receive Date: 20050125
  Receipt Date: 20040908
  Transmission Date: 20050727
  Serious: No
  Sender: FDA-Public Use
  Company Number: USA030843191

PATIENT
  Age: 77 Year
  Sex: Female
  Weight: 61 kg

DRUGS (4)
  1. EVISTA [Suspect]
     Indication: OSTEOPOROSIS
     Dosage: 60 MG/ DAY
     Dates: start: 20020101
  2. FORTEO [Suspect]
     Indication: OSTEOPOROSIS
  3. CALCIUM GLUCONATE [Concomitant]
  4. FOSAMAX [Concomitant]

REACTIONS (2)
  - CONSTIPATION [None]
  - MUSCLE SPASMS [None]
